FAERS Safety Report 5061308-2 (Version None)
Quarter: 2006Q3

REPORT INFORMATION
  Report Type: 
  Country: None (occurrence: None)
  Receive Date: 20060719
  Receipt Date: 20060719
  Transmission Date: 20061208
  Serious: Yes (Hospitalization)
  Sender: FDA-Public Use
  Company Number: None

PATIENT
  Age: 86 Year
  Sex: Male

DRUGS (8)
  1. HYDROCHLOROTHIAZIDE [Suspect]
     Indication: HYPERTENSION
     Dosage: 25MG QD
     Dates: start: 20060515
  2. TERAZOSIN HCL [Suspect]
     Indication: BENIGN PROSTATIC HYPERPLASIA
     Dosage: 1MG QHS
     Dates: start: 20060515
  3. ACETAMINOPHEN [Concomitant]
  4. EPOETIN [Concomitant]
  5. B12 [Concomitant]
  6. M.V.I. [Concomitant]
  7. OMEPRAZOLE [Concomitant]
  8. ZOCOR [Concomitant]

REACTIONS (2)
  - HYPONATRAEMIA [None]
  - ORTHOSTATIC HYPOTENSION [None]
